FAERS Safety Report 14874447 (Version 1)
Quarter: 2018Q2

REPORT INFORMATION
  Report Type: Report from Study
  Country: AU (occurrence: AU)
  Receive Date: 20180510
  Receipt Date: 20180510
  Transmission Date: 20180711
  Serious: Yes (Hospitalization)
  Sender: FDA-Public Use
  Company Number: AU-MYLANLABS-2017M1042318

PATIENT
  Sex: Female

DRUGS (1)
  1. CLOZARIL [Suspect]
     Active Substance: CLOZAPINE
     Indication: SCHIZOPHRENIA
     Dosage: 300 MG, UNK
     Route: 048
     Dates: start: 20161229

REACTIONS (4)
  - Mental disorder [Unknown]
  - Hallucination [Unknown]
  - Hallucination, auditory [Unknown]
  - Delusion [Unknown]
